FAERS Safety Report 16754861 (Version 1)
Quarter: 2019Q3

REPORT INFORMATION
  Report Type: Spontaneous
  Country: JP (occurrence: JP)
  Receive Date: 20190829
  Receipt Date: 20190829
  Transmission Date: 20191005
  Serious: Yes (Other)
  Sender: FDA-Public Use
  Company Number: JP-OTSUKA-2019_029648

PATIENT
  Sex: Female

DRUGS (4)
  1. SAMSCA [Suspect]
     Active Substance: TOLVAPTAN
     Dosage: 15MG/DAY, FREQUENCY UNKNOWN
     Route: 048
     Dates: start: 20190816, end: 20190816
  2. SAMSCA [Suspect]
     Active Substance: TOLVAPTAN
     Dosage: 15 MG, QD, IN THE EVENING
     Route: 048
     Dates: start: 20190814, end: 20190814
  3. SAMSCA [Suspect]
     Active Substance: TOLVAPTAN
     Indication: CONGENITAL CYSTIC KIDNEY DISEASE
     Dosage: 45 MG, QD, IN THE MORNING
     Route: 048
     Dates: start: 20190814, end: 20190814
  4. SAMSCA [Suspect]
     Active Substance: TOLVAPTAN
     Dosage: 15MG/DAY, FREQUENCY UNKNOWN
     Route: 048
     Dates: start: 20190813, end: 20190813

REACTIONS (7)
  - Blood creatine phosphokinase increased [Unknown]
  - Blood sodium decreased [Unknown]
  - Myalgia [Unknown]
  - Back pain [Recovered/Resolved]
  - Feeling abnormal [Unknown]
  - Hypoxia [Unknown]
  - Urinary incontinence [Unknown]

NARRATIVE: CASE EVENT DATE: 20190814
